FAERS Safety Report 7259866-2 (Version None)
Quarter: 2011Q1

REPORT INFORMATION
  Report Type: 
  Country: None (occurrence: None)
  Receive Date: 20110130
  Receipt Date: 20100904
  Transmission Date: 20110831
  Serious: No
  Sender: FDA-Public Use
  Company Number: US-ABBOTT-10P-163-0668946-00

PATIENT
  Age: 35 Year
  Sex: Female

DRUGS (8)
  1. HUMIRA [Suspect]
     Indication: RHEUMATOID ARTHRITIS
  2. LORTAB [Concomitant]
     Indication: PRODUCT USED FOR UNKNOWN INDICATION
     Dosage: 10/350
  3. FELDENE [Concomitant]
     Indication: PRODUCT USED FOR UNKNOWN INDICATION
  4. CELEXA [Concomitant]
     Indication: PRODUCT USED FOR UNKNOWN INDICATION
  5. ARAZA [Concomitant]
     Indication: PRODUCT USED FOR UNKNOWN INDICATION
  6. EMBEDA [Concomitant]
     Indication: PRODUCT USED FOR UNKNOWN INDICATION
     Dosage: 20/.8 MG
  7. NEURONTIN [Concomitant]
     Indication: PRODUCT USED FOR UNKNOWN INDICATION
     Dosage: 1/2 TAB EVERY AM AND NOON AND 2.5 TABS AT HS
  8. SOMA [Concomitant]
     Indication: PRODUCT USED FOR UNKNOWN INDICATION

REACTIONS (3)
  - INFLUENZA LIKE ILLNESS [None]
  - PYREXIA [None]
  - FATIGUE [None]
